FAERS Safety Report 14686018 (Version 1)
Quarter: 2018Q1

REPORT INFORMATION
  Report Type: Spontaneous
  Country: US (occurrence: US)
  Receive Date: 20180327
  Receipt Date: 20180327
  Transmission Date: 20180509
  Serious: No
  Sender: FDA-Public Use
  Company Number: US-PFIZER INC-2018124822

PATIENT
  Age: 4 Decade
  Sex: Female

DRUGS (1)
  1. EUCRISA [Suspect]
     Active Substance: CRISABOROLE
     Dosage: 3 DF, UNK
     Route: 061

REACTIONS (2)
  - Application site pruritus [Not Recovered/Not Resolved]
  - Condition aggravated [Unknown]
